FAERS Safety Report 13359017 (Version 1)
Quarter: 2017Q1

REPORT INFORMATION
  Report Type: Spontaneous
  Country: US (occurrence: US)
  Receive Date: 20170322
  Receipt Date: 20170322
  Transmission Date: 20170429
  Serious: No
  Sender: FDA-Public Use
  Company Number: US-BAYER-2017-054240

PATIENT
  Age: 66 Year
  Sex: Female
  Weight: 73 kg

DRUGS (5)
  1. ALEVE [Suspect]
     Active Substance: NAPROXEN SODIUM
     Indication: PAIN
     Dosage: 2 DF, UNK
     Route: 048
     Dates: end: 20170321
  2. VITAMIN B12 [Suspect]
     Active Substance: CYANOCOBALAMIN
  3. ALEVE [Suspect]
     Active Substance: NAPROXEN SODIUM
     Indication: HEADACHE
  4. VITAMIN D [Concomitant]
     Active Substance: CHOLECALCIFEROL
  5. SUMATRIPTAN. [Concomitant]
     Active Substance: SUMATRIPTAN

REACTIONS (4)
  - Throat tightness [Unknown]
  - Product use issue [None]
  - Nausea [Unknown]
  - Drug ineffective [Unknown]
